FAERS Safety Report 8003529-2 (Version None)
Quarter: 2011Q4

REPORT INFORMATION
  Report Type: 
  Country: None (occurrence: None)
  Receive Date: 20111222
  Receipt Date: 20111216
  Transmission Date: 20120403
  Serious: Yes (Other)
  Sender: FDA-Public Use
  Company Number: US-PFIZER INC-2011249208

PATIENT
  Sex: Female
  Weight: 97.506 kg

DRUGS (5)
  1. CHANTIX [Suspect]
     Dosage: 1 MG, 2X/DAY
     Route: 048
     Dates: start: 20111001
  2. METHADONE [Concomitant]
     Indication: BACK PAIN
  3. METHADONE [Concomitant]
     Indication: NECK PAIN
     Dosage: 150 MG, DAILY
  4. DOCUSATE [Concomitant]
     Indication: CONSTIPATION
     Dosage: 500 MG, DAILY
  5. CHANTIX [Suspect]
     Indication: SMOKING CESSATION THERAPY
     Dosage: 0.5 MG, 1X/DAY
     Route: 048
     Dates: start: 20111007, end: 20111001

REACTIONS (10)
  - DIZZINESS [None]
  - MENTAL IMPAIRMENT [None]
  - ANXIETY [None]
  - NIGHTMARE [None]
  - VISUAL IMPAIRMENT [None]
  - HALLUCINATION [None]
  - FEELING ABNORMAL [None]
  - ABNORMAL DREAMS [None]
  - ABNORMAL BEHAVIOUR [None]
  - DISTURBANCE IN ATTENTION [None]
